FAERS Safety Report 21686043 (Version 1)
Quarter: 2022Q4

REPORT INFORMATION
  Report Type: Other
  Country: US (occurrence: None)
  Receive Date: 20221206
  Receipt Date: 20221206
  Transmission Date: 20230112
  Serious: No
  Sender: FDA-Public Use
  Company Number: US-ROCHE-3230396

PATIENT
  Sex: Female
  Weight: 77.180 kg

DRUGS (11)
  1. OCREVUS [Suspect]
     Active Substance: OCRELIZUMAB
     Indication: Primary progressive multiple sclerosis
     Dosage: ^STARTED 6 MONTHS AFTER FIRST DOSE^
     Route: 042
  2. OCREVUS [Suspect]
     Active Substance: OCRELIZUMAB
     Dosage: THE FIRST ONE WAS 300 MG, THEN I WENT 2 WEEKS LATER FOR MY SECOND?DOSE OF 300 MG
     Route: 042
     Dates: start: 202006
  3. NP THYROID [Concomitant]
     Active Substance: LEVOTHYROXINE\LIOTHYRONINE
     Indication: Autoimmune thyroiditis
     Dosage: IN THE MORNING, 30 MINUTES BEFORE FOOD OR DRINK
     Route: 048
     Dates: start: 2018
  4. IRON [Concomitant]
     Active Substance: IRON
     Indication: Anaemia
     Route: 048
     Dates: start: 2018
  5. VITAMIN D2 [Concomitant]
     Active Substance: ERGOCALCIFEROL
     Dosage: AT NIGHT
     Dates: start: 2018
  6. CANNABIS SATIVA SUBSP. INDICA TOP [Concomitant]
     Active Substance: CANNABIS SATIVA SUBSP. INDICA TOP
     Indication: Pain management
     Dosage: USED ONLY IN EXTREME CASES- EAT A QUARTER A GUMMY, 1 GUMMY IS 5 MG
     Route: 048
     Dates: start: 202006
  7. CANNABIS SATIVA SUBSP. INDICA TOP [Concomitant]
     Active Substance: CANNABIS SATIVA SUBSP. INDICA TOP
     Indication: Depression
  8. CANNABIS SATIVA SUBSP. INDICA TOP [Concomitant]
     Active Substance: CANNABIS SATIVA SUBSP. INDICA TOP
     Indication: Anxiety
  9. CANNABIS SATIVA SUBSP. INDICA TOP [Concomitant]
     Active Substance: CANNABIS SATIVA SUBSP. INDICA TOP
     Indication: Muscle spasms
  10. CANNABIS SATIVA SUBSP. INDICA TOP [Concomitant]
     Active Substance: CANNABIS SATIVA SUBSP. INDICA TOP
     Indication: Neuralgia
  11. CANNABIS SATIVA SUBSP. INDICA TOP [Concomitant]
     Active Substance: CANNABIS SATIVA SUBSP. INDICA TOP
     Indication: Nausea

REACTIONS (3)
  - Oral hairy leukoplakia [Not Recovered/Not Resolved]
  - Epstein-Barr virus antibody positive [Unknown]
  - Epstein-Barr virus antibody positive [Unknown]

NARRATIVE: CASE EVENT DATE: 20210101
